FAERS Safety Report 19397220 (Version 3)
Quarter: 2021Q4

REPORT INFORMATION
  Report Type: Other
  Country: US (occurrence: US)
  Receive Date: 20210610
  Receipt Date: 20211206
  Transmission Date: 20220303
  Serious: No
  Sender: FDA-Public Use
  Company Number: US-NEUROCRINE BIOSCIENCES INC.-2021NBI02708

PATIENT

DRUGS (23)
  1. INGREZZA [Suspect]
     Active Substance: VALBENAZINE
     Indication: Tardive dyskinesia
     Dosage: 60 MILLIGRAM, QD
     Route: 048
     Dates: start: 20211015, end: 20211030
  2. INGREZZA [Suspect]
     Active Substance: VALBENAZINE
     Dosage: 40 MILLIGRAM, QD
     Route: 048
     Dates: start: 20210601, end: 20211014
  3. INGREZZA [Suspect]
     Active Substance: VALBENAZINE
     Dosage: 40 MILLIGRAM, QD
     Route: 048
     Dates: start: 202105, end: 2021
  4. INGREZZA [Suspect]
     Active Substance: VALBENAZINE
     Dosage: 80 MILLIGRAM, QD, AM
     Route: 048
     Dates: start: 20210401, end: 2021
  5. LORAZEPAM [Concomitant]
     Active Substance: LORAZEPAM
     Indication: Anxiety
     Dosage: 1 MILLIGRAM, PRN
     Route: 048
  6. HALOPERIDOL [Concomitant]
     Active Substance: HALOPERIDOL
     Indication: Bipolar disorder
     Dosage: 10 MILLIGRAM, BID
     Route: 048
  7. HALOPERIDOL [Concomitant]
     Active Substance: HALOPERIDOL
     Indication: Schizophrenia
  8. FENOFIBRATE [Concomitant]
     Active Substance: FENOFIBRATE
     Indication: Bipolar disorder
     Dosage: 48 MILLIGRAM, BID
     Route: 065
  9. FENOFIBRATE [Concomitant]
     Active Substance: FENOFIBRATE
     Indication: Schizophrenia
  10. METFORMIN [Concomitant]
     Active Substance: METFORMIN HYDROCHLORIDE
     Indication: Bipolar disorder
     Dosage: 500 MILLIGRAM, QD
     Route: 065
  11. METFORMIN [Concomitant]
     Active Substance: METFORMIN HYDROCHLORIDE
     Indication: Schizophrenia
  12. ATORVASTATIN [Concomitant]
     Active Substance: ATORVASTATIN
     Indication: Bipolar disorder
     Dosage: 40 MILLIGRAM, QD
     Route: 065
  13. ATORVASTATIN [Concomitant]
     Active Substance: ATORVASTATIN
     Indication: Schizophrenia
  14. PREVALITE [Concomitant]
     Active Substance: CHOLESTYRAMINE
     Indication: Bipolar disorder
     Dosage: UNK
     Route: 065
  15. PREVALITE [Concomitant]
     Active Substance: CHOLESTYRAMINE
     Indication: Schizophrenia
  16. DOXYCINE [Concomitant]
     Indication: Bipolar disorder
     Dosage: 100 MILLIGRAM
     Route: 065
  17. DOXYCINE [Concomitant]
     Indication: Schizophrenia
  18. VITAMINS [Concomitant]
     Active Substance: VITAMINS
     Indication: Bipolar disorder
     Dosage: UNK
  19. VITAMINS [Concomitant]
     Active Substance: VITAMINS
     Indication: Schizophrenia
  20. PROBIOTICS NOS [Concomitant]
     Active Substance: PROBIOTICS NOS
     Indication: Bipolar disorder
     Dosage: UNK
  21. PROBIOTICS NOS [Concomitant]
     Active Substance: PROBIOTICS NOS
     Indication: Schizophrenia
  22. FISH OIL [Concomitant]
     Active Substance: FISH OIL
     Indication: Bipolar disorder
     Dosage: UNK
  23. FISH OIL [Concomitant]
     Active Substance: FISH OIL
     Indication: Schizophrenia

REACTIONS (6)
  - Decreased appetite [Recovered/Resolved]
  - Trance [Recovered/Resolved]
  - Feeling abnormal [Unknown]
  - Lethargy [Recovered/Resolved]
  - Bradykinesia [Recovered/Resolved]
  - Therapeutic product effect decreased [Unknown]

NARRATIVE: CASE EVENT DATE: 20210101
